FAERS Safety Report 23756317 (Version 1)
Quarter: 2024Q2

REPORT INFORMATION
  Report Type: Spontaneous
  Country: US (occurrence: US)
  Receive Date: 20240418
  Receipt Date: 20240418
  Transmission Date: 20240716
  Serious: No
  Sender: FDA-Public Use
  Company Number: US-ELI_LILLY_AND_COMPANY-US202305013588

PATIENT
  Age: 52 Year
  Sex: Female

DRUGS (1)
  1. TRULICITY [Suspect]
     Active Substance: DULAGLUTIDE
     Indication: Product used for unknown indication
     Dosage: 1.5 MG, UNKNOWN
     Route: 065

REACTIONS (8)
  - Urinary incontinence [Unknown]
  - Blood glucose increased [Unknown]
  - Burning sensation [Unknown]
  - Back pain [Unknown]
  - Muscular weakness [Unknown]
  - Paraesthesia [Unknown]
  - Gait disturbance [Unknown]
  - Fatigue [Unknown]
